FAERS Safety Report 20892863 (Version 8)
Quarter: 2023Q1

REPORT INFORMATION
  Report Type: Report from Study
  Country: US (occurrence: US)
  Receive Date: 20220531
  Receipt Date: 20230314
  Transmission Date: 20230417
  Serious: No
  Sender: FDA-Public Use
  Company Number: US-NOVARTISTESTPH-NVSC2022US124046

PATIENT
  Age: 47 Year
  Sex: Female

DRUGS (1)
  1. KESIMPTA [Suspect]
     Active Substance: OFATUMUMAB
     Indication: Relapsing multiple sclerosis
     Dosage: 20 MG, QMO
     Route: 058
     Dates: start: 20211208

REACTIONS (20)
  - Stress [Unknown]
  - Hypoaesthesia [Unknown]
  - Feeling of body temperature change [Unknown]
  - Intervertebral disc protrusion [Unknown]
  - Menopausal symptoms [Unknown]
  - Peripheral swelling [Unknown]
  - COVID-19 [Unknown]
  - Temperature intolerance [Unknown]
  - Arthritis [Unknown]
  - Asthenia [Unknown]
  - Therapeutic response shortened [Unknown]
  - Sinus disorder [Unknown]
  - Nasopharyngitis [Unknown]
  - Urticaria [Unknown]
  - Sciatica [Unknown]
  - Weight increased [Unknown]
  - Pulmonary function test abnormal [Unknown]
  - Bronchitis [Unknown]
  - Asthma [Unknown]
  - Fatigue [Unknown]

NARRATIVE: CASE EVENT DATE: 20220527
